FAERS Safety Report 7141043-7 (Version None)
Quarter: 2010Q4

REPORT INFORMATION
  Report Type: 
  Country: None (occurrence: None)
  Receive Date: 20101207
  Receipt Date: 20101123
  Transmission Date: 20110411
  Serious: Yes (Other)
  Sender: FDA-Public Use
  Company Number: US-BAYER-2010-001362

PATIENT
  Sex: Female

DRUGS (1)
  1. DROSPIRENONE + ETHINYLESTRADIOL 20A?G (24+4) [Suspect]
     Dosage: UNK
     Dates: start: 20081001, end: 20081120

REACTIONS (2)
  - PNEUMONIA [None]
  - PULMONARY EMBOLISM [None]
